FAERS Safety Report 8777199 (Version 2)
Quarter: 2012Q4

REPORT INFORMATION
  Report Type: 
  Country: US (occurrence: US)
  Receive Date: 20120911
  Receipt Date: 20120921
  Transmission Date: 20130627
  Serious: No
  Sender: FDA-Public Use
  Company Number: US-009507513-1209USA001182

PATIENT
  Age: 50 Year
  Sex: Female

DRUGS (2)
  1. DULERA [Suspect]
     Route: 055
  2. SPIRIVA [Concomitant]

REACTIONS (1)
  - Vision blurred [Unknown]
